FAERS Safety Report 5978467-7 (Version None)
Quarter: 2008Q4

REPORT INFORMATION
  Report Type: 
  Country: None (occurrence: None)
  Receive Date: 20081204
  Receipt Date: 20081126
  Transmission Date: 20090506
  Serious: Yes (Disabling, Other)
  Sender: FDA-Public Use
  Company Number: US-ASTRAZENECA-2008AC03090

PATIENT

DRUGS (6)
  1. BUPIVACAINE WITH EPINEPHRINE [Suspect]
     Dosage: PREOPERATIVE
     Route: 014
  2. BUPIVACAINE WITH EPINEPHRINE [Suspect]
     Dosage: POSTOPERATIVE
     Route: 014
  3. BUPIVACAINE WITH EPINEPHRINE [Suspect]
     Route: 014
  4. STRYKER PAIN PUMP CATHETER [Suspect]
  5. MORPHINE SULFATE [Concomitant]
     Route: 014
  6. KETOROLAC TROMETHAMINE [Concomitant]
     Route: 014

REACTIONS (1)
  - CHONDROLYSIS [None]
